FAERS Safety Report 22013527 (Version 1)
Quarter: 2023Q1

REPORT INFORMATION
  Report Type: Spontaneous
  Country: NO (occurrence: NO)
  Receive Date: 20230220
  Receipt Date: 20230220
  Transmission Date: 20230417
  Serious: Yes (Other)
  Sender: FDA-Public Use
  Company Number: NO-PIRAMAL CRITICAL CARE LIMITED-2023-PEL-000104

PATIENT

DRUGS (1)
  1. ISOFLURANE [Suspect]
     Active Substance: ISOFLURANE
     Indication: Sedative therapy
     Dosage: 3-7 ML/HOUR
     Dates: start: 20230130, end: 20230131

REACTIONS (2)
  - Chromaturia [Recovering/Resolving]
  - Blood creatine phosphokinase increased [Recovering/Resolving]

NARRATIVE: CASE EVENT DATE: 20230131
